FAERS Safety Report 6137621-4 (Version None)
Quarter: 2009Q1

REPORT INFORMATION
  Report Type: 
  Country: None (occurrence: None)
  Receive Date: 20090331
  Receipt Date: 20090323
  Transmission Date: 20090719
  Serious: Yes (Hospitalization)
  Sender: FDA-Public Use
  Company Number: PHHY2009MX10837

PATIENT
  Sex: Female

DRUGS (1)
  1. EXFORGE [Suspect]
     Indication: HYPERTENSION
     Dosage: 160/10 MG DAILY
     Route: 048
     Dates: start: 20071101

REACTIONS (4)
  - CARDIAC OPERATION [None]
  - COLLAPSE OF LUNG [None]
  - LUNG OPERATION [None]
  - MYOCARDIAL INFARCTION [None]
